FAERS Safety Report 18275016 (Version 2)
Quarter: 2020Q3

REPORT INFORMATION
  Report Type: Spontaneous
  Country: US (occurrence: US)
  Receive Date: 20200917
  Receipt Date: 20200917
  Transmission Date: 20201103
  Serious: Yes (Hospitalization)
  Sender: FDA-Public Use
  Company Number: US-ALKEM LABORATORIES LIMITED-US-ALKEM-2020-03924

PATIENT
  Age: 12 Year
  Sex: Male

DRUGS (3)
  1. DEFERASIROX. [Suspect]
     Active Substance: DEFERASIROX
     Indication: CHELATION THERAPY
     Dosage: 250 MILLIGRAM, QD
     Route: 065
  2. FOLIC ACID. [Concomitant]
     Active Substance: FOLIC ACID
     Indication: PRODUCT USED FOR UNKNOWN INDICATION
     Dosage: 1 MILLIGRAM, QD
     Route: 065
  3. PENICILLIN VK [Concomitant]
     Active Substance: PENICILLIN V POTASSIUM
     Indication: PRODUCT USED FOR UNKNOWN INDICATION
     Dosage: 250 MILLIGRAM IN 5 ML, BID
     Route: 065

REACTIONS (6)
  - Coagulopathy [Unknown]
  - Encephalopathy [Unknown]
  - Hyperammonaemia [Unknown]
  - Acute hepatic failure [Recovering/Resolving]
  - Acute kidney injury [Recovered/Resolved]
  - Leukocytosis [Unknown]
